FAERS Safety Report 9498378 (Version 4)
Quarter: 2013Q4

REPORT INFORMATION
  Report Type: Spontaneous
  Country: NZ (occurrence: NZ)
  Receive Date: 20130904
  Receipt Date: 20131115
  Transmission Date: 20140711
  Serious: Yes (Death)
  Sender: FDA-Public Use
  Company Number: NZ-ELI_LILLY_AND_COMPANY-NZ201308007171

PATIENT
  Age: 51 Year
  Sex: Male

DRUGS (5)
  1. ZYPREXA RELPREVV [Suspect]
     Indication: AFFECTIVE DISORDER
     Dosage: 300 MG, 2/M
     Route: 030
  2. OLANZAPINE [Suspect]
     Indication: AFFECTIVE DISORDER
     Dosage: 15 MG, EACH EVENING
     Route: 065
     Dates: start: 20120628
  3. ZOPICLONE [Concomitant]
     Indication: SLEEP DISORDER
     Dosage: 7.5 MG, OTHER: 1-2 TABLETS NOCTE
     Route: 048
  4. SODIUM VALPROATE [Concomitant]
     Indication: PRODUCT USED FOR UNKNOWN INDICATION
     Dosage: 1000 MG, EACH MORNING
     Route: 048
  5. SODIUM VALPROATE [Concomitant]
     Dosage: 1500 MG, EACH EVENING
     Route: 065

REACTIONS (2)
  - Death [Fatal]
  - Prescribed overdose [Unknown]
